FAERS Safety Report 6391300-7 (Version None)
Quarter: 2009Q4

REPORT INFORMATION
  Report Type: 
  Country: None (occurrence: None)
  Receive Date: 20091007
  Receipt Date: 20090925
  Transmission Date: 20100525
  Serious: Yes (Hospitalization, Other)
  Sender: FDA-Public Use
  Company Number: PHHY2009FR37925

PATIENT
  Sex: Female
  Weight: 62 kg

DRUGS (6)
  1. LAMISIL [Suspect]
     Indication: ONYCHOMYCOSIS
     Dosage: 1 DF, QD
     Dates: start: 20090729, end: 20090830
  2. RILMENIDINE [Concomitant]
     Indication: HYPERTENSION
     Dosage: 1 DF/DAY
     Dates: start: 20060101
  3. SIMVASTATIN [Concomitant]
     Indication: DYSLIPIDAEMIA
     Dosage: 1 TO 20  DF/DAY
     Dates: start: 20060101
  4. HYTACAND [Concomitant]
     Indication: HYPERTENSION
     Dosage: 1 DF/DAY
     Dates: start: 20060101
  5. ALPRAZOLAM [Concomitant]
     Indication: ANXIETY
     Dosage: 1 TO 25  DF/DAY
     Dates: start: 20000101
  6. ZYMAD [Concomitant]
     Indication: TOOTH DECALCIFICATION
     Dosage: 1 DF BY QUARTER

REACTIONS (13)
  - AGEUSIA [None]
  - C-REACTIVE PROTEIN INCREASED [None]
  - DECREASED APPETITE [None]
  - FATIGUE [None]
  - GAIT DISTURBANCE [None]
  - HEPATITIS [None]
  - MYALGIA [None]
  - NAUSEA [None]
  - NIGHT SWEATS [None]
  - PAIN IN EXTREMITY [None]
  - PYREXIA [None]
  - RED BLOOD CELL SEDIMENTATION RATE INCREASED [None]
  - SERUM FERRITIN INCREASED [None]
